FAERS Safety Report 8088684-0 (Version None)
Quarter: 2012Q1

REPORT INFORMATION
  Report Type: 
  Country: None (occurrence: None)
  Receive Date: 20120128
  Receipt Date: 20110411
  Transmission Date: 20120608
  Serious: No
  Sender: FDA-Public Use
  Company Number: US-ABBOTT-11P-163-0718570-00

PATIENT
  Sex: Female

DRUGS (5)
  1. HUMIRA [Suspect]
     Indication: PSORIASIS
     Dates: start: 20110201
  2. NAPROXEN (ALEVE) [Concomitant]
     Indication: PAIN
  3. FLAX SEED [Concomitant]
     Indication: MINERAL SUPPLEMENTATION
  4. CALCIUM [Concomitant]
     Indication: MINERAL SUPPLEMENTATION
  5. OGESTREL 0.5/50-21 [Concomitant]
     Indication: VITAMIN SUPPLEMENTATION

REACTIONS (1)
  - ABDOMINAL DISCOMFORT [None]
